FAERS Safety Report 4555367-0 (Version None)
Quarter: 2005Q1

REPORT INFORMATION
  Report Type: 
  Country: None (occurrence: None)
  Receive Date: 20050118
  Receipt Date: 20050118
  Transmission Date: 20050727
  Serious: Yes (Other)
  Sender: FDA-Public Use
  Company Number: None

PATIENT
  Sex: Female
  Weight: 69.0375 kg

DRUGS (8)
  1. METHOTREXATE [Suspect]
     Indication: RHEUMATOID ARTHRITIS
     Dosage: 5 MG WEEKLY
     Dates: start: 19880101, end: 20040101
  2. HYDROXYCHLOROQUINE SULFATE [Concomitant]
  3. RISEDRONATE [Concomitant]
  4. VALDECOXIB [Concomitant]
  5. GLUCOVANCE [Concomitant]
  6. HYDROCHLOROTHIAZIDE [Concomitant]
  7. DETROL [Concomitant]
  8. ASPIRIN [Concomitant]

REACTIONS (2)
  - BASAL CELL CARCINOMA [None]
  - MALIGNANT MELANOMA [None]
